FAERS Safety Report 14384604 (Version 2)
Quarter: 2018Q3

REPORT INFORMATION
  Report Type: Spontaneous
  Country: US (occurrence: US)
  Receive Date: 20180115
  Receipt Date: 20180727
  Transmission Date: 20181010
  Serious: Yes (Other)
  Sender: FDA-Public Use
  Company Number: US-BAYER-2018-007737

PATIENT
  Sex: Female

DRUGS (9)
  1. PRENATAL VITAMINS [Concomitant]
     Active Substance: VITAMINS
  2. VITAMIN D3 [Concomitant]
     Active Substance: CHOLECALCIFEROL
  3. VITAMIN E [Concomitant]
     Active Substance: .ALPHA.-TOCOPHEROL
  4. MIRENA [Suspect]
     Active Substance: LEVONORGESTREL
     Indication: CONTRACEPTION
     Dosage: 20 MCG/24HR, CONT
     Route: 015
     Dates: start: 20180126, end: 20180430
  5. MIRENA [Suspect]
     Active Substance: LEVONORGESTREL
     Indication: CONTRACEPTION
     Dosage: 20 MCG/24HR, CONT
     Route: 015
     Dates: start: 20170929, end: 20180126
  6. COLLAGEN [Concomitant]
     Active Substance: COLLAGEN
  7. BIOTIN [Concomitant]
     Active Substance: BIOTIN
  8. MIRENA [Suspect]
     Active Substance: LEVONORGESTREL
     Indication: CONTRACEPTION
     Dosage: 20 MCG/24HR, CONT
     Route: 015
     Dates: start: 20121004, end: 20170929
  9. FISH OIL [Concomitant]
     Active Substance: FISH OIL

REACTIONS (7)
  - Device dislocation [None]
  - Uterine leiomyoma [None]
  - Ovarian cyst [None]
  - Ovarian cyst [None]
  - Device expulsion [None]
  - Uterine leiomyoma [None]
  - Device dislocation [None]

NARRATIVE: CASE EVENT DATE: 201701
